FAERS Safety Report 13328462 (Version 1)
Quarter: 2017Q1

REPORT INFORMATION
  Report Type: Spontaneous
  Country: US (occurrence: US)
  Receive Date: 20170310
  Receipt Date: 20170310
  Transmission Date: 20170428
  Serious: Yes (Hospitalization)
  Sender: FDA-Public Use
  Company Number: None

PATIENT
  Age: 64 Year
  Sex: Female
  Weight: 96.1 kg

DRUGS (2)
  1. APIXABAN [Suspect]
     Active Substance: APIXABAN
     Indication: PULMONARY EMBOLISM
     Route: 048
     Dates: start: 20161219
  2. CARBOPLATIN/PACLITAXEL [Concomitant]
     Active Substance: CARBOPLATIN\PACLITAXEL

REACTIONS (7)
  - Nausea [None]
  - Dehydration [None]
  - Asthenia [None]
  - Small intestinal obstruction [None]
  - Vomiting [None]
  - Tachycardia [None]
  - Diarrhoea [None]

NARRATIVE: CASE EVENT DATE: 20170226
